FAERS Safety Report 17121020 (Version 2)
Quarter: 2020Q2

REPORT INFORMATION
  Report Type: Spontaneous
  Country: US (occurrence: US)
  Receive Date: 20191206
  Receipt Date: 20200402
  Transmission Date: 20200713
  Serious: No
  Sender: FDA-Public Use
  Company Number: US-UCBSA-2017027146

PATIENT
  Sex: Female

DRUGS (3)
  1. NEUPRO [Suspect]
     Active Substance: ROTIGOTINE
     Indication: RESTLESS LEGS SYNDROME
     Dosage: 4 MG, ONCE DAILY (QD)
     Route: 062
     Dates: start: 2016, end: 2017
  2. NEUPRO [Suspect]
     Active Substance: ROTIGOTINE
     Dosage: 6 MG, ONCE DAILY (QD)
     Route: 062
     Dates: start: 20170704
  3. NEUPRO [Suspect]
     Active Substance: ROTIGOTINE
     Dosage: 8 MILLIGRAM, ONCE DAILY (QD)
     Route: 062

REACTIONS (4)
  - Overdose [Unknown]
  - Drug ineffective [Unknown]
  - Product adhesion issue [Unknown]
  - Intentional product misuse [Unknown]

NARRATIVE: CASE EVENT DATE: 2016
